FAERS Safety Report 8469691-2 (Version None)
Quarter: 2012Q2

REPORT INFORMATION
  Report Type: 
  Country: None (occurrence: None)
  Receive Date: 20120626
  Receipt Date: 20120618
  Transmission Date: 20120825
  Serious: Yes (Hospitalization)
  Sender: FDA-Public Use
  Company Number: GB-ROXANE LABORATORIES, INC.-2012-RO-01432RO

PATIENT
  Age: 50 Year
  Sex: Female
  Weight: 137 kg

DRUGS (9)
  1. NOREPINEPHRINE BITARTRATE [Suspect]
     Route: 042
  2. CALCIUM GLUCONATE [Suspect]
     Route: 042
  3. GLUCAGON [Suspect]
     Route: 042
  4. ADRENALIN IN OIL INJ [Suspect]
     Route: 042
  5. AMLODIPINE [Suspect]
     Indication: HYPERTENSION
     Dosage: 770 MG
     Route: 048
  6. NOREPINEPHRINE BITARTRATE [Suspect]
     Route: 042
  7. HYPERINSULINAEMIA-EUGLYCAEMIA [Suspect]
     Route: 042
  8. LOSARTAN POTASSIUM [Suspect]
     Indication: HYPERTENSION
     Dosage: 16640 MG
     Route: 048
  9. VASOPRESSIN [Suspect]
     Route: 042

REACTIONS (9)
  - ANURIA [None]
  - MULTIPLE DRUG OVERDOSE [None]
  - RENAL IMPAIRMENT [None]
  - HYPOTENSION [None]
  - VOMITING [None]
  - HYPOXIA [None]
  - PULMONARY OEDEMA [None]
  - METABOLIC ACIDOSIS [None]
  - HYPERKALAEMIA [None]
